FAERS Safety Report 5239026-7 (Version None)
Quarter: 2007Q1

REPORT INFORMATION
  Report Type: 
  Country: None (occurrence: None)
  Receive Date: 20070209
  Receipt Date: 20070131
  Transmission Date: 20070707
  Serious: Yes (Hospitalization)
  Sender: FDA-Public Use
  Company Number: MEDI-0005369

PATIENT
  Age: 52 Year
  Sex: Male
  Weight: 81.6475 kg

DRUGS (7)
  1. ETHYOL [Suspect]
     Indication: RADIOTHERAPY
     Dosage: 500 MG, 5 IN 5 D, SUBCUTANEOUS
     Route: 058
     Dates: start: 20061227, end: 20070126
  2. ERBITUX [Suspect]
     Indication: NEOPLASM MALIGNANT
     Dosage: INTRAVENOUS (NOT OTHERWISE SPECIFIED)
     Route: 042
     Dates: end: 20070112
  3. RADIATION THERAPY [Concomitant]
  4. CISPLATIN [Concomitant]
  5. TAXOTERE [Concomitant]
  6. PROTONIX [Concomitant]
  7. DECADRON [Concomitant]

REACTIONS (7)
  - ERYTHEMA [None]
  - OEDEMA PERIPHERAL [None]
  - PAIN IN EXTREMITY [None]
  - PYREXIA [None]
  - SKIN DISCOLOURATION [None]
  - SKIN ULCER [None]
  - WOUND SECRETION [None]
